FAERS Safety Report 16647836 (Version 1)
Quarter: 2019Q3

REPORT INFORMATION
  Report Type: Spontaneous
  Country: US (occurrence: US)
  Receive Date: 20190616
  Receipt Date: 20190616
  Transmission Date: 20191004
  Serious: Yes (Life-Threatening, Other)
  Sender: FDA-Public Use
  Company Number: None

PATIENT
  Age: 70 Year
  Sex: Female
  Weight: 43.73 kg

DRUGS (18)
  1. BACLOFEN. [Concomitant]
     Active Substance: BACLOFEN
  2. GABAPENTIN 10MG [Concomitant]
  3. CRESTOR [Concomitant]
     Active Substance: ROSUVASTATIN CALCIUM
  4. VITAMIN B-12 1000MCG [Concomitant]
  5. TYLENOL 500MG TABLETS [Concomitant]
  6. HCTZ 12.5MG [Concomitant]
  7. ESTRADIOL 0.025MG [Concomitant]
  8. LIDOCAINE PATCH [Suspect]
     Active Substance: LIDOCAINE
     Indication: MYELOPATHY
     Dosage: ?          QUANTITY:60 TOT - TOTAL;?
     Route: 062
     Dates: start: 20190517
  9. PROMETRIUM 100MG [Concomitant]
  10. TRAMADOL 50MG [Concomitant]
     Active Substance: TRAMADOL
  11. LISINOPRIL 10MG [Concomitant]
     Active Substance: LISINOPRIL
  12. ZANTAC [Concomitant]
     Active Substance: RANITIDINE HYDROCHLORIDE
  13. ASPIRIN 81MG [Concomitant]
     Active Substance: ASPIRIN
  14. CALCIUM 1000 MG [Concomitant]
  15. VITAMIN D3 2000MG [Concomitant]
  16. WOMENS ONE-A-DAY VITAMINS [Concomitant]
  17. NO DRUG NAME [Concomitant]
  18. TRANSDERMAL [Concomitant]

REACTIONS (2)
  - Rash erythematous [None]
  - Rash pruritic [None]

NARRATIVE: CASE EVENT DATE: 20190517
